FAERS Safety Report 6120012-X (Version None)
Quarter: 2009Q1

REPORT INFORMATION
  Report Type: 
  Country: None (occurrence: None)
  Receive Date: 20090316
  Receipt Date: 20090309
  Transmission Date: 20090719
  Serious: Yes (Other)
  Sender: FDA-Public Use
  Company Number: FI-ROXANE LABORATORIES, INC.-2009-RO-00223RO

PATIENT
  Age: 4 Year
  Sex: Female

DRUGS (10)
  1. METHOTREXATE [Suspect]
     Indication: SYNOVITIS
  2. METHOTREXATE [Suspect]
     Route: 058
  3. DEXAMETHASONE [Suspect]
     Indication: UVEITIS
     Dosage: .3MG
     Route: 061
  4. PREDNISOLONE [Suspect]
     Indication: SYNOVITIS
     Route: 048
  5. PREDNISOLONE [Suspect]
     Route: 048
  6. INFLIXIMAB [Suspect]
  7. ETANERCEPT [Suspect]
  8. CYCLOSPORINE [Suspect]
     Indication: UVEITIS
  9. CORTICOSTEROIDS [Suspect]
     Indication: SYNOVITIS
     Route: 014
  10. ADALIMUMAB [Concomitant]
     Indication: UVEITIS

REACTIONS (7)
  - ADRENAL INSUFFICIENCY [None]
  - ADVERSE EVENT [None]
  - DRUG INEFFECTIVE [None]
  - HYPERSENSITIVITY [None]
  - NAUSEA [None]
  - OBESITY [None]
  - UVEITIS [None]
